FAERS Safety Report 22168968 (Version 1)
Quarter: 2023Q2

REPORT INFORMATION
  Report Type: Spontaneous
  Country: US (occurrence: US)
  Receive Date: 20230403
  Receipt Date: 20230403
  Transmission Date: 20230721
  Serious: Yes (Other)
  Sender: FDA-Public Use
  Company Number: US-SA-SAC20230330000706

PATIENT
  Age: 57 Year
  Sex: Male

DRUGS (2)
  1. CAPRELSA [Suspect]
     Active Substance: VANDETANIB
     Indication: Thyroid disorder
     Dosage: 100 MG, QD
     Route: 048
     Dates: start: 20191009, end: 20221130
  2. CAPRELSA [Suspect]
     Active Substance: VANDETANIB
     Dosage: 100 UNK
     Route: 048
     Dates: start: 20230214

REACTIONS (3)
  - Erectile dysfunction [Unknown]
  - Fatigue [Unknown]
  - Product dose omission in error [Unknown]
